FAERS Safety Report 12535296 (Version 1)
Quarter: 2016Q3

REPORT INFORMATION
  Report Type: Spontaneous
  Country: US (occurrence: US)
  Receive Date: 20160707
  Receipt Date: 20160707
  Transmission Date: 20161109
  Serious: Yes (Other)
  Sender: FDA-Public Use
  Company Number: US-009507513-2003-108985-NL

PATIENT

DRUGS (1)
  1. ORGARAN [Suspect]
     Active Substance: DANAPAROID SODIUM
     Indication: THROMBOSIS PROPHYLAXIS
     Route: 058

REACTIONS (3)
  - Haemorrhage [Unknown]
  - Wound haematoma [Unknown]
  - Drug ineffective [Unknown]
